FAERS Safety Report 11239103 (Version 1)
Quarter: 2015Q3

REPORT INFORMATION
  Report Type: Spontaneous
  Country: US (occurrence: None)
  Receive Date: 20150701
  Receipt Date: 20150701
  Transmission Date: 20151125
  Serious: Yes (Other)
  Sender: FDA-Public Use
  Company Number: US2015071920

PATIENT
  Age: 53 Year
  Sex: Female

DRUGS (1)
  1. TUMS EX [Suspect]
     Active Substance: CALCIUM CARBONATE
     Indication: ABDOMINAL DISCOMFORT
     Route: 048

REACTIONS (3)
  - Drug administration error [None]
  - Diarrhoea haemorrhagic [None]
  - Vomiting [None]

NARRATIVE: CASE EVENT DATE: 20150523
